FAERS Safety Report 6396624-5 (Version None)
Quarter: 2009Q4

REPORT INFORMATION
  Report Type: 
  Country: None (occurrence: None)
  Receive Date: 20091012
  Receipt Date: 20091001
  Transmission Date: 20100525
  Serious: Yes (Hospitalization)
  Sender: FDA-Public Use
  Company Number: US-NOVOPROD-292340

PATIENT
  Sex: Female

DRUGS (13)
  1. NOVOLOG MIX 70/30 [Suspect]
     Indication: INSULIN-REQUIRING TYPE 2 DIABETES MELLITUS
     Dosage: 67 IU, QD
     Route: 058
     Dates: start: 20000101, end: 20090703
  2. NOVOLOG MIX 70/30 [Suspect]
     Dosage: 74 IU, QD
     Route: 058
     Dates: start: 20090701
  3. KLOR-CON [Concomitant]
     Indication: HYPOKALAEMIA
  4. TRAMADOL HCL [Concomitant]
     Indication: INFLAMMATION
  5. LOVASTATIN [Concomitant]
     Indication: BLOOD CHOLESTEROL INCREASED
  6. FUROSEMIDE [Concomitant]
     Indication: DIURETIC THERAPY
  7. GABAPENTIN [Concomitant]
     Indication: INFLAMMATION
  8. PRILOSEC [Concomitant]
     Indication: DRUG USE FOR UNKNOWN INDICATION
  9. ALTACE [Concomitant]
     Indication: HYPERTENSION
  10. COREG [Concomitant]
     Indication: HYPERTENSION
  11. ASPIRIN [Concomitant]
     Indication: DRUG USE FOR UNKNOWN INDICATION
  12. ASPIRIN [Concomitant]
     Indication: DRUG USE FOR UNKNOWN INDICATION
  13. OSCAL                              /00108001/ [Concomitant]
     Indication: OSTEOPOROSIS

REACTIONS (4)
  - BLOOD GLUCOSE DECREASED [None]
  - BLOOD GLUCOSE INCREASED [None]
  - DIZZINESS [None]
  - LOSS OF CONSCIOUSNESS [None]
